FAERS Safety Report 8405155-X (Version None)
Quarter: 2012Q2

REPORT INFORMATION
  Report Type: 
  Country: None (occurrence: None)
  Receive Date: 20120602
  Receipt Date: 20120505
  Transmission Date: 20120825
  Serious: No
  Sender: FDA-Public Use
  Company Number: US-BAYER-2012-048456

PATIENT

DRUGS (4)
  1. EXTRA STRENGTH TYLENOL [Concomitant]
     Indication: TOOTHACHE
     Dosage: 4 DF, UNK
  2. IBUPROFEN [Concomitant]
     Indication: TOOTHACHE
     Dosage: 2 DF, UNK
  3. APAP W/ CODEINE [Concomitant]
     Indication: TOOTHACHE
     Dosage: 2 DF, UNK
  4. ALEVE (CAPLET) [Suspect]
     Indication: TOOTHACHE
     Dosage: 6 DF, UNK
     Route: 048

REACTIONS (1)
  - TOOTHACHE [None]
